FAERS Safety Report 6853173-5 (Version None)
Quarter: 2010Q3

REPORT INFORMATION
  Report Type: 
  Country: None (occurrence: None)
  Receive Date: 20100717
  Receipt Date: 20071201
  Transmission Date: 20110219
  Serious: No
  Sender: FDA-Public Use
  Company Number: US-PFIZER INC-2007102318

PATIENT
  Sex: Male
  Weight: 113.4 kg

DRUGS (3)
  1. CHANTIX [Suspect]
     Indication: SMOKING CESSATION THERAPY
     Dates: start: 20071101
  2. CRESTOR [Concomitant]
  3. LISINOPRIL [Concomitant]

REACTIONS (2)
  - MASTICATION DISORDER [None]
  - SWOLLEN TONGUE [None]
